FAERS Safety Report 19273578 (Version 1)
Quarter: 2021Q2

REPORT INFORMATION
  Report Type: Spontaneous
  Country: US (occurrence: US)
  Receive Date: 20210519
  Receipt Date: 20210519
  Transmission Date: 20210717
  Serious: Yes (Hospitalization)
  Sender: FDA-Public Use
  Company Number: US-SUN PHARMACEUTICAL INDUSTRIES LTD-2021R1-297010

PATIENT
  Age: 2 Year
  Sex: Male
  Weight: 12.7 kg

DRUGS (4)
  1. SOTALOL. [Suspect]
     Active Substance: SOTALOL
     Dosage: 165 MILLIGRAM/SQ. METER, DAILY
     Route: 048
  2. PROPRANOLOL [Concomitant]
     Active Substance: PROPRANOLOL HYDROCHLORIDE
     Indication: PRODUCT USED FOR UNKNOWN INDICATION
     Dosage: 3 MILLIGRAM/KILOGRAM, DAILY
     Route: 065
  3. SOTALOL. [Suspect]
     Active Substance: SOTALOL
     Indication: SUPRAVENTRICULAR TACHYCARDIA
     Dosage: UNK
     Route: 042
  4. SOTALOL. [Suspect]
     Active Substance: SOTALOL
     Dosage: 173 MILLIGRAM/SQ. METER, TID
     Route: 048

REACTIONS (1)
  - Hypoglycaemia [Recovered/Resolved]
